FAERS Safety Report 4562640-9 (Version None)
Quarter: 2005Q1

REPORT INFORMATION
  Report Type: 
  Country: None (occurrence: None)
  Receive Date: 20050127
  Receipt Date: 20050118
  Transmission Date: 20050727
  Serious: Yes (Hospitalization)
  Sender: FDA-Public Use
  Company Number: GB-JNJFOC-20050105706

PATIENT
  Age: 80 Year
  Sex: Male

DRUGS (5)
  1. IBUPROFEN [Suspect]
     Indication: PAIN IN EXTREMITY
     Route: 049
  2. CO-CODAMOL [Concomitant]
     Dosage: 8/500 MG, 2 QDS, PRN
     Route: 049
  3. CO-CODAMOL [Concomitant]
     Dosage: 30/500 MG, 1 OR 2 QDS, PRN, ORAL
     Route: 049
  4. ADCAL-D3 [Concomitant]
     Route: 049
  5. ADCAL-D3 [Concomitant]
     Route: 049

REACTIONS (2)
  - HAEMATEMESIS [None]
  - MELAENA [None]
